FAERS Safety Report 7904273-X (Version None)
Quarter: 2011Q4

REPORT INFORMATION
  Report Type: 
  Country: None (occurrence: None)
  Receive Date: 20111109
  Receipt Date: 20111103
  Transmission Date: 20120403
  Serious: Yes (Hospitalization)
  Sender: FDA-Public Use
  Company Number: US-ABBOTT-11P-163-0871724-00

PATIENT
  Age: 49 Year
  Sex: Female

DRUGS (1)
  1. HUMIRA [Suspect]
     Indication: PSORIASIS
     Route: 058
     Dates: start: 20080601, end: 20110807

REACTIONS (8)
  - PAIN IN EXTREMITY [None]
  - HYPOAESTHESIA [None]
  - WALKING AID USER [None]
  - GUILLAIN-BARRE SYNDROME [None]
  - BACK PAIN [None]
  - GENERAL PHYSICAL HEALTH DETERIORATION [None]
  - APHASIA [None]
  - WHEELCHAIR USER [None]
